FAERS Safety Report 20700904 (Version 2)
Quarter: 2022Q3

REPORT INFORMATION
  Report Type: Spontaneous
  Country: US (occurrence: US)
  Receive Date: 20220412
  Receipt Date: 20220708
  Transmission Date: 20221026
  Serious: No
  Sender: FDA-Public Use
  Company Number: US-PFIZER INC-2021448509

PATIENT
  Age: 65 Year
  Sex: Female

DRUGS (1)
  1. XELJANZ XR [Suspect]
     Active Substance: TOFACITINIB CITRATE
     Indication: Rheumatoid arthritis
     Dosage: 11 MG, DAILY
     Route: 048
     Dates: start: 2016

REACTIONS (3)
  - Product dose omission issue [Unknown]
  - Myalgia [Unknown]
  - Rheumatoid nodule [Recovering/Resolving]
